FAERS Safety Report 9995356 (Version 1)
Quarter: 2014Q1

REPORT INFORMATION
  Report Type: Spontaneous
  Country: GB (occurrence: None)
  Receive Date: 20140307
  Receipt Date: 20140307
  Transmission Date: 20141002
  Serious: Yes (Other)
  Sender: FDA-Public Use
  Company Number: AUR-APL-2014-02296

PATIENT
  Age: 46 Year
  Sex: Female
  Weight: 120.6 kg

DRUGS (3)
  1. MIRTAZAPINE [Suspect]
     Indication: DEPRESSION
     Route: 048
     Dates: start: 20140101
  2. LANSOPRAZOLE (LANSOPRAZOLE) [Concomitant]
  3. NASONEX (MOMETASONE FUROATE) [Concomitant]

REACTIONS (6)
  - Muscle twitching [None]
  - Anger [None]
  - Suicidal ideation [None]
  - Aggression [None]
  - Violence-related symptom [None]
  - Eye disorder [None]
